FAERS Safety Report 20245046 (Version 1)
Quarter: 2021Q4

REPORT INFORMATION
  Report Type: Spontaneous
  Country: CA (occurrence: CA)
  Receive Date: 20211229
  Receipt Date: 20211229
  Transmission Date: 20220304
  Serious: Yes (Other)
  Sender: FDA-Public Use
  Company Number: CA-AUROBINDO-AUR-APL-2021-052675

PATIENT
  Age: 73 Year
  Sex: Female

DRUGS (4)
  1. METFORMIN [Suspect]
     Active Substance: METFORMIN HYDROCHLORIDE
     Indication: Blood glucose increased
     Dosage: UNK
     Route: 065
  2. FULVESTRANT [Suspect]
     Active Substance: FULVESTRANT
     Indication: Product used for unknown indication
     Dosage: UNK
     Route: 065
  3. PIQRAY [Suspect]
     Active Substance: ALPELISIB
     Indication: Breast cancer metastatic
     Dosage: 100 MILLIGRAM, ONCE A DAY
     Route: 065
  4. PIQRAY [Suspect]
     Active Substance: ALPELISIB
     Dosage: 200 MILLIGRAM, ONCE A DAY
     Route: 048

REACTIONS (18)
  - Blood glucose increased [Unknown]
  - Breast cancer metastatic [Unknown]
  - Contusion [Unknown]
  - Drug interaction [Unknown]
  - Dry skin [Unknown]
  - Hypoaesthesia [Unknown]
  - Malaise [Unknown]
  - Malignant neoplasm progression [Unknown]
  - Muscle spasms [Unknown]
  - Off label use [Unknown]
  - Pain [Unknown]
  - Peripheral swelling [Unknown]
  - Poor quality sleep [Unknown]
  - Pruritus [Unknown]
  - Staphylococcal infection [Unknown]
  - Stress [Unknown]
  - Therapeutic response unexpected [Unknown]
  - Wound [Unknown]
